FAERS Safety Report 4303609-9 (Version None)
Quarter: 2004Q1

REPORT INFORMATION
  Report Type: 
  Country: None (occurrence: None)
  Receive Date: 20040225
  Receipt Date: 20030730
  Transmission Date: 20041129
  Serious: Yes (Life-Threatening)
  Sender: FDA-Public Use
  Company Number: PHBS2003JP08078

PATIENT
  Age: 63 Year
  Sex: Male
  Weight: 57 kg

DRUGS (7)
  1. AMOBAN [Concomitant]
     Indication: CHRONIC MYELOID LEUKAEMIA
     Dosage: 1 DF/D
     Route: 048
     Dates: start: 20030713, end: 20030725
  2. GLEEVEC [Suspect]
     Indication: CHRONIC MYELOID LEUKAEMIA
     Dosage: 400 MG, QD
     Route: 048
     Dates: start: 20030714, end: 20030729
  3. OTHER ANALGESICS AND ANTIPYRETICS [Concomitant]
  4. ANALGESIC LIQ [Concomitant]
  5. ITRIZOLE [Concomitant]
     Route: 048
     Dates: start: 20030711, end: 20030729
  6. CIPROXAN [Concomitant]
     Dosage: 3 DF/D
     Route: 048
     Dates: start: 20030711, end: 20030729
  7. ZYLORIC ^FAES^ [Concomitant]
     Dosage: 2 DF/D
     Route: 048
     Dates: start: 20030708, end: 20030805

REACTIONS (4)
  - ACUTE RESPIRATORY DISTRESS SYNDROME [None]
  - ARTHRALGIA [None]
  - EPIGASTRIC DISCOMFORT [None]
  - MALAISE [None]
